FAERS Safety Report 11635834 (Version 3)
Quarter: 2016Q2

REPORT INFORMATION
  Report Type: Spontaneous
  Country: JP (occurrence: JP)
  Receive Date: 20151016
  Receipt Date: 20160413
  Transmission Date: 20160815
  Serious: Yes (Death)
  Sender: FDA-Public Use
  Company Number: JP-AMGEN-JPNSP2015108380

PATIENT
  Age: 76 Year
  Sex: Male

DRUGS (2)
  1. NESP [Suspect]
     Active Substance: DARBEPOETIN ALFA
     Indication: MYELODYSPLASTIC SYNDROME
     Dosage: UNK
     Route: 065
  2. NESP [Suspect]
     Active Substance: DARBEPOETIN ALFA
     Dosage: UNK (DOSE INCREASED)
     Route: 065
     Dates: start: 20150805

REACTIONS (1)
  - Cerebral haemorrhage [Fatal]
